FAERS Safety Report 17819548 (Version 2)
Quarter: 2022Q4

REPORT INFORMATION
  Report Type: Spontaneous
  Country: DE (occurrence: DE)
  Receive Date: 20200523
  Receipt Date: 20221013
  Transmission Date: 20230112
  Serious: Yes (Hospitalization)
  Sender: FDA-Public Use
  Company Number: DE-NOVARTISPH-NVSC2020DE137051

PATIENT
  Age: 57 Year
  Sex: Female

DRUGS (1)
  1. METHYLPREDNISOLONE [Suspect]
     Active Substance: METHYLPREDNISOLONE
     Indication: Product used for unknown indication
     Dosage: NK MG, NK
     Route: 065

REACTIONS (11)
  - Dyspepsia [Unknown]
  - Musculoskeletal chest pain [Unknown]
  - Decreased appetite [Unknown]
  - Weight decreased [Unknown]
  - Night sweats [Unknown]
  - Nausea [Unknown]
  - Musculoskeletal pain [Unknown]
  - Hepatitis [Unknown]
  - Transaminases increased [Unknown]
  - Hepatic enzyme increased [Unknown]
  - Abdominal pain upper [Unknown]
